FAERS Safety Report 17743392 (Version 7)
Quarter: 2020Q4

REPORT INFORMATION
  Report Type: Report from Study
  Country: US (occurrence: US)
  Receive Date: 20200504
  Receipt Date: 20201118
  Transmission Date: 20210113
  Serious: Yes (Hospitalization, Other)
  Sender: FDA-Public Use
  Company Number: NVSC2020US120268

PATIENT
  Sex: Female

DRUGS (1)
  1. ENTRESTO [Suspect]
     Active Substance: SACUBITRIL\VALSARTAN
     Indication: PRODUCT USED FOR UNKNOWN INDICATION
     Dosage: UNK UNK, UNKNOWN
     Route: 048
     Dates: start: 202003

REACTIONS (11)
  - Headache [Unknown]
  - Gait disturbance [Not Recovered/Not Resolved]
  - Asthenia [Not Recovered/Not Resolved]
  - Fall [Recovering/Resolving]
  - Erythema [Unknown]
  - Chest pain [Unknown]
  - Arthritis [Unknown]
  - Swelling [Recovering/Resolving]
  - Ejection fraction decreased [Recovering/Resolving]
  - Condition aggravated [Unknown]
  - Cellulitis [Unknown]
